FAERS Safety Report 4706405-3 (Version None)
Quarter: 2005Q2

REPORT INFORMATION
  Report Type: 
  Country: None (occurrence: None)
  Receive Date: 20050112
  Receipt Date: 20050112
  Transmission Date: 20051028
  Serious: No
  Sender: FDA-Public Use
  Company Number: None

PATIENT
  Sex: Male
  Weight: 110.2241 kg

DRUGS (3)
  1. DILANTIN [Suspect]
     Indication: EPILEPSY
     Dosage: SEE ABOVE  FOR YEARS
  2. RISPERDAL [Concomitant]
  3. SYNTHROID [Concomitant]

REACTIONS (1)
  - DRUG LEVEL CHANGED [None]
